FAERS Safety Report 4570728-1 (Version None)
Quarter: 2005Q1

REPORT INFORMATION
  Report Type: 
  Country: None (occurrence: None)
  Receive Date: 20050202
  Receipt Date: 20050120
  Transmission Date: 20050727
  Serious: Yes (Hospitalization)
  Sender: FDA-Public Use
  Company Number: HQWYE517211JAN05

PATIENT
  Age: 53 Year
  Sex: Male

DRUGS (11)
  1. RAPAMUNE [Suspect]
     Indication: PROPHYLAXIS AGAINST TRANSPLANT REJECTION
     Dosage: 4 MG 1X PER 1 DAY, ORAL
     Route: 048
     Dates: start: 20010912
  2. NPH INSULIN [Concomitant]
  3. ASPIRIN [Concomitant]
  4. METFORMIN HCL [Concomitant]
  5. PRAVASTATIN [Concomitant]
  6. AZATHIOPRINE [Concomitant]
  7. PREDNISONE [Concomitant]
  8. METOPROLOL TARTRATE [Concomitant]
  9. PRAZOSIN GITS [Concomitant]
  10. ISOSORBIDE (ISOSORBIDE) [Concomitant]
  11. ENALAPRIL MALEATE [Concomitant]

REACTIONS (7)
  - ABDOMINAL PAIN [None]
  - ANAEMIA [None]
  - GASTRODUODENITIS [None]
  - HEPATIC STEATOSIS [None]
  - PANCREATIC CYST [None]
  - RENAL CYST [None]
  - RENAL DISORDER [None]
